FAERS Safety Report 5381157-5 (Version None)
Quarter: 2007Q3

REPORT INFORMATION
  Report Type: 
  Country: None (occurrence: None)
  Receive Date: 20070706
  Receipt Date: 20070626
  Transmission Date: 20080115
  Serious: Yes (Other)
  Sender: FDA-Public Use
  Company Number: DE-PFIZER INC-2007050530

PATIENT
  Sex: Male
  Weight: 62 kg

DRUGS (4)
  1. CHAMPIX [Suspect]
     Indication: SMOKING CESSATION THERAPY
     Dosage: DAILY DOSE:.5MG-FREQ:DAILY
     Route: 048
     Dates: start: 20070526, end: 20070614
  2. TRANXILIUM [Interacting]
     Indication: ANXIETY
     Dosage: DAILY DOSE:20MG-FREQ:DAILY
     Route: 048
  3. ACTRAPID [Concomitant]
  4. ALL OTHER THERAPEUTIC PRODUCTS [Concomitant]
     Route: 048
     Dates: start: 20070614, end: 20070614

REACTIONS (16)
  - ABNORMAL DREAMS [None]
  - ANOREXIA [None]
  - BLOOD GLUCOSE INCREASED [None]
  - BONE DISORDER [None]
  - DRUG INTERACTION [None]
  - FATIGUE [None]
  - FLATULENCE [None]
  - GASTRIC DISORDER [None]
  - HEADACHE [None]
  - HYPOAESTHESIA [None]
  - MOOD ALTERED [None]
  - MUSCULOSKELETAL CHEST PAIN [None]
  - PHOTOSENSITIVITY REACTION [None]
  - SOMNOLENCE [None]
  - THINKING ABNORMAL [None]
  - TINNITUS [None]
